FAERS Safety Report 10496702 (Version 7)
Quarter: 2017Q3

REPORT INFORMATION
  Report Type: Report from Study
  Country: US (occurrence: US)
  Receive Date: 20141006
  Receipt Date: 20170731
  Transmission Date: 20171127
  Serious: Yes (Hospitalization, Other)
  Sender: FDA-Public Use
  Company Number: US-AMGEN-USASP2014075075

PATIENT
  Age: 45 Year
  Sex: Female

DRUGS (7)
  1. ENBREL [Suspect]
     Active Substance: ETANERCEPT
     Indication: PSORIATIC ARTHROPATHY
     Dosage: 50 MG, QWK
     Route: 065
     Dates: start: 20140804, end: 2014
  2. ENBREL [Suspect]
     Active Substance: ETANERCEPT
     Dosage: 50 MG, QWK
     Route: 065
     Dates: start: 201707
  3. HUMIRA [Concomitant]
     Active Substance: ADALIMUMAB
     Indication: PSORIATIC ARTHROPATHY
     Dosage: UNK
     Route: 065
     Dates: start: 2016
  4. HUMIRA [Concomitant]
     Active Substance: ADALIMUMAB
     Indication: RHEUMATOID ARTHRITIS
     Dosage: UNK
     Route: 065
  5. ENBREL [Suspect]
     Active Substance: ETANERCEPT
     Indication: PSORIASIS
     Dosage: 50 MG, 2 TIMES/WK
     Route: 065
     Dates: start: 20040415
  6. ENBREL [Suspect]
     Active Substance: ETANERCEPT
     Indication: RHEUMATOID ARTHRITIS
     Dosage: 50 MG, QWK
     Route: 065
     Dates: end: 2012
  7. HUMIRA [Concomitant]
     Active Substance: ADALIMUMAB
     Indication: PSORIASIS

REACTIONS (19)
  - Renal failure [Recovered/Resolved]
  - Bipolar disorder [Not Recovered/Not Resolved]
  - Fall [Recovered/Resolved]
  - Weight decreased [Not Recovered/Not Resolved]
  - Accidental exposure to product [Unknown]
  - Sinus disorder [Unknown]
  - Anaemia [Recovered/Resolved]
  - Pneumonia aspiration [Recovered/Resolved]
  - Psoriasis [Unknown]
  - Grip strength decreased [Not Recovered/Not Resolved]
  - Underdose [Unknown]
  - Pneumonia [Recovered/Resolved]
  - Arthralgia [Not Recovered/Not Resolved]
  - Psoriatic arthropathy [Unknown]
  - Therapeutic response unexpected [Unknown]
  - Injection site pain [Unknown]
  - Nasopharyngitis [Recovered/Resolved]
  - Diabetic neuropathy [Not Recovered/Not Resolved]
  - Confusional state [Not Recovered/Not Resolved]

NARRATIVE: CASE EVENT DATE: 200905
